FAERS Safety Report 24351089 (Version 1)
Quarter: 2024Q3

REPORT INFORMATION
  Report Type: Report from Study
  Country: PE (occurrence: PE)
  Receive Date: 20240923
  Receipt Date: 20240923
  Transmission Date: 20241016
  Serious: No
  Sender: ROCHE
  Company Number: PE-ROCHE-3538198

PATIENT
  Age: 47 Year
  Sex: Female
  Weight: 52.0 kg

DRUGS (5)
  1. HERCEPTIN [Suspect]
     Active Substance: TRASTUZUMAB
     Indication: Breast cancer
     Dosage: 1ST INFUSION IN 90 MINUTES; FROM 2ND INFUSION, IN 30 MINUTES, DAY 1
     Route: 042
     Dates: start: 20231116
  2. PERJETA [Suspect]
     Active Substance: PERTUZUMAB
     Indication: Breast cancer
     Route: 042
     Dates: start: 20231116
  3. CHLORPHENIRAMINE MALEATE [Concomitant]
     Active Substance: CHLORPHENIRAMINE MALEATE
     Dosage: DAY 1, PRIOR TO MONOCLONAL AGENT
     Route: 048
  4. ACETAMINOPHEN [Concomitant]
     Active Substance: ACETAMINOPHEN
     Dosage: DAY 1, PRIOR TO MONOCLONAL AGENT
     Route: 048
  5. SODIUM CHLORIDE [Concomitant]
     Active Substance: SODIUM CHLORIDE
     Dosage: PRIOR TO MONOCLONAL AGENT, DAY 1
     Route: 042

REACTIONS (2)
  - Off label use [Unknown]
  - Weight decreased [Unknown]
